FAERS Safety Report 6424642-7 (Version None)
Quarter: 2009Q4

REPORT INFORMATION
  Report Type: 
  Country: None (occurrence: None)
  Receive Date: 20091103
  Receipt Date: 20091022
  Transmission Date: 20100525
  Serious: Yes (Hospitalization, Other)
  Sender: FDA-Public Use
  Company Number: US-BAYER-200937174NA

PATIENT
  Age: 22 Year
  Sex: Female

DRUGS (1)
  1. MIRENA [Suspect]
     Indication: CONTRACEPTION
     Dosage: CONTINUOUS
     Route: 015
     Dates: start: 20090216, end: 20091021

REACTIONS (5)
  - AGGRESSION [None]
  - CONVULSION [None]
  - GRAND MAL CONVULSION [None]
  - LETHARGY [None]
  - MENTAL STATUS CHANGES [None]
